FAERS Safety Report 25199014 (Version 2)
Quarter: 2025Q3

REPORT INFORMATION
  Report Type: Spontaneous
  Country: BR (occurrence: BR)
  Receive Date: 20250415
  Receipt Date: 20250809
  Transmission Date: 20251020
  Serious: Yes (Other)
  Sender: ALEXION PHARMACEUTICALS
  Company Number: BR-AstraZeneca-CH-00845252A

PATIENT
  Sex: Male
  Weight: 75 kg

DRUGS (1)
  1. IMFINZI [Suspect]
     Active Substance: DURVALUMAB

REACTIONS (3)
  - Pulmonary embolism [Recovered/Resolved]
  - Atypical pneumonia [Recovered/Resolved]
  - Lymphadenopathy [Recovered/Resolved]
